FAERS Safety Report 8529993-8 (Version None)
Quarter: 2012Q3

REPORT INFORMATION
  Report Type: 
  Country: None (occurrence: None)
  Receive Date: 20120723
  Receipt Date: 20120307
  Transmission Date: 20120928
  Serious: No
  Sender: FDA-Public Use
  Company Number: US-GLAXOSMITHKLINE-A0968993A

PATIENT
  Age: 71 Year
  Sex: Female

DRUGS (4)
  1. DYAZIDE [Suspect]
     Indication: HYPERTENSION
     Dosage: 1CAP PER DAY
     Route: 048
     Dates: start: 19860101
  2. SYNTHROID [Concomitant]
  3. XALATAN [Concomitant]
  4. ACCUPRIL [Concomitant]

REACTIONS (2)
  - DIZZINESS [None]
  - BLOOD GLUCOSE INCREASED [None]
